FAERS Safety Report 18037754 (Version 4)
Quarter: 2020Q4

REPORT INFORMATION
  Report Type: Spontaneous
  Country: US (occurrence: US)
  Receive Date: 20200717
  Receipt Date: 20201103
  Transmission Date: 20210113
  Serious: Yes (Death, Hospitalization)
  Sender: FDA-Public Use
  Company Number: US-SA-2020SA184812

PATIENT

DRUGS (2)
  1. DUPIXENT [Suspect]
     Active Substance: DUPILUMAB
     Dosage: 300 MG, QOW
     Route: 058
     Dates: start: 2020
  2. DUPIXENT [Suspect]
     Active Substance: DUPILUMAB
     Indication: PRODUCT USED FOR UNKNOWN INDICATION
     Dosage: 600 MG, 1X
     Route: 058
     Dates: start: 202006, end: 202006

REACTIONS (6)
  - Infection [Unknown]
  - Road traffic accident [Fatal]
  - Skin irritation [Unknown]
  - Skin burning sensation [Unknown]
  - Sinusitis [Unknown]
  - Back injury [Unknown]

NARRATIVE: CASE EVENT DATE: 2020
